FAERS Safety Report 10652134 (Version 1)
Quarter: 2014Q4

REPORT INFORMATION
  Report Type: Other
  Country: JP (occurrence: JP)
  Receive Date: 20141215
  Receipt Date: 20141215
  Transmission Date: 20150529
  Serious: Yes (Other)
  Sender: FDA-Public Use
  Company Number: JP-ACTELION-A-CH2014-109292

PATIENT
  Age: 55 Year
  Sex: Female

DRUGS (1)
  1. TRACLEER [Suspect]
     Active Substance: BOSENTAN\BOSENTAN MONOHYDRATE
     Indication: PULMONARY HYPERTENSION
     Route: 048

REACTIONS (3)
  - Interstitial lung disease [Recovering/Resolving]
  - Lung transplant [Unknown]
  - Pulmonary hypertension [Unknown]
